FAERS Safety Report 11742826 (Version 3)
Quarter: 2015Q4

REPORT INFORMATION
  Report Type: Report from Study
  Country: JP (occurrence: JP)
  Receive Date: 20151116
  Receipt Date: 20151203
  Transmission Date: 20160304
  Serious: Yes (Other)
  Sender: FDA-Public Use
  Company Number: JP-DEP_13038_2015

PATIENT
  Age: 60 Year
  Sex: Male
  Weight: 60 kg

DRUGS (42)
  1. TAPENTADOL (TAPENTADOL) [Suspect]
     Active Substance: TAPENTADOL
     Dosage: UNK
     Route: 048
     Dates: start: 20150722, end: 20150722
  2. OXETHAZAINE [Concomitant]
     Active Substance: OXETHAZAINE
     Indication: PROPHYLAXIS
     Dosage: DF
     Dates: start: 20150802, end: 20150816
  3. UBRETID [Concomitant]
     Active Substance: DISTIGMINE BROMIDE
     Indication: NEUROGENIC BLADDER
     Dates: start: 20150710
  4. LIDOCAINE HYDROCHLORIDE. [Concomitant]
     Active Substance: LIDOCAINE HYDROCHLORIDE
     Indication: PROPHYLAXIS
     Dosage: DF
     Dates: start: 20150813, end: 20150817
  5. SENNOSIDE A+B CALCIUM [Concomitant]
     Active Substance: SENNOSIDES A AND B
     Indication: PROPHYLAXIS
     Dosage: DF
  6. ARCRANE [Concomitant]
     Indication: PROPHYLAXIS
     Dosage: DF
     Dates: start: 20150720, end: 20150723
  7. PLAVIX [Concomitant]
     Active Substance: CLOPIDOGREL BISULFATE
     Indication: MYOCARDIAL ISCHAEMIA
     Dosage: DF
  8. PARIET [Concomitant]
     Active Substance: RABEPRAZOLE SODIUM
     Indication: PROPHYLAXIS
     Dosage: DF
     Dates: end: 20150817
  9. TAKEPRON [Concomitant]
     Active Substance: LANSOPRAZOLE
     Indication: PROPHYLAXIS
     Dosage: DF
     Dates: start: 20150818, end: 20150904
  10. REBAMIPIDE [Concomitant]
     Active Substance: REBAMIPIDE
     Indication: PROPHYLAXIS
     Dosage: DF
     Dates: end: 20150816
  11. TS-1 [Concomitant]
     Active Substance: GIMERACIL\OTERACIL\TEGAFUR
     Indication: LUNG NEOPLASM MALIGNANT
     Dosage: DF
     Dates: end: 20150716
  12. BENIDIPINE HYDROCHLORIDE [Concomitant]
     Active Substance: BENIDIPINE HYDROCHLORIDE
     Indication: HYPERTENSION
     Dosage: DF
     Dates: end: 20150804
  13. GASMOTIN [Concomitant]
     Active Substance: MOSAPRIDE CITRATE
     Indication: CONSTIPATION
     Dates: start: 20150807, end: 20150816
  14. DOMPERIDONE [Concomitant]
     Active Substance: DOMPERIDONE
     Indication: PROPHYLAXIS
     Dosage: DF
     Dates: start: 20150802, end: 20150802
  15. FUNGIZONE [Concomitant]
     Active Substance: AMPHOTERICIN B
     Indication: PROPHYLAXIS
     Dosage: DF
     Dates: start: 20150908, end: 20150916
  16. PROCHLORPERAZINE MALEATE. [Concomitant]
     Active Substance: PROCHLORPERAZINE MALEATE
     Indication: PROPHYLAXIS
     Dosage: DF
     Dates: end: 20150722
  17. OXYCODONE HYDROCHLORIDE. [Concomitant]
     Active Substance: OXYCODONE HYDROCHLORIDE
     Dosage: DF
     Dates: start: 20150710, end: 20150710
  18. OXYCONTIN [Suspect]
     Active Substance: OXYCODONE HYDROCHLORIDE
     Indication: CANCER PAIN
     Route: 048
     Dates: start: 20150708, end: 20150709
  19. OXYCONTIN [Suspect]
     Active Substance: OXYCODONE HYDROCHLORIDE
     Route: 048
     Dates: end: 20150707
  20. CALONAL [Concomitant]
     Active Substance: ACETAMINOPHEN
     Dosage: DF
     Dates: end: 20150708
  21. OXYCODONE HYDROCHLORIDE. [Concomitant]
     Active Substance: OXYCODONE HYDROCHLORIDE
     Dosage: DF
     Dates: start: 20150711, end: 20150712
  22. OXYCODONE HYDROCHLORIDE. [Concomitant]
     Active Substance: OXYCODONE HYDROCHLORIDE
     Dosage: DF
     Dates: start: 20150708, end: 20150708
  23. TAPENTADOL (TAPENTADOL) [Suspect]
     Active Substance: TAPENTADOL
     Indication: CANCER PAIN
     Dosage: UNK
     Route: 048
     Dates: start: 20150709, end: 20150712
  24. TAPENTADOL (TAPENTADOL) [Suspect]
     Active Substance: TAPENTADOL
     Dosage: UNK
     Route: 048
     Dates: start: 20150713, end: 20150721
  25. TAPENTADOL (TAPENTADOL) [Suspect]
     Active Substance: TAPENTADOL
     Dosage: UNK
     Route: 048
     Dates: start: 20150723
  26. URIEF [Concomitant]
     Active Substance: SILODOSIN
     Indication: NEUROGENIC BLADDER
     Dates: start: 20150709
  27. HUMALOG [Concomitant]
     Active Substance: INSULIN LISPRO
     Indication: DIABETES MELLITUS
     Dosage: DF
  28. OXYCODONE HYDROCHLORIDE. [Concomitant]
     Active Substance: OXYCODONE HYDROCHLORIDE
     Dosage: DF
     Dates: start: 20150715, end: 20150715
  29. OXYCODONE HYDROCHLORIDE. [Concomitant]
     Active Substance: OXYCODONE HYDROCHLORIDE
     Dosage: DF
     Dates: start: 20150709, end: 20150709
  30. OXYCODONE HYDROCHLORIDE. [Concomitant]
     Active Substance: OXYCODONE HYDROCHLORIDE
     Dosage: DF
     Dates: start: 20150716, end: 20150717
  31. CIBENOL [Concomitant]
     Active Substance: CIFENLINE
     Indication: ARRHYTHMIA
     Dosage: DF
     Dates: start: 20150910
  32. ZOLPIDEM TARTRATE. [Concomitant]
     Active Substance: ZOLPIDEM TARTRATE
     Indication: INSOMNIA
     Dates: start: 20150802
  33. CARVEDILOL. [Concomitant]
     Active Substance: CARVEDILOL
     Indication: HYPERTENSION
     Dosage: DF
     Dates: end: 20150810
  34. WYPAX [Concomitant]
     Active Substance: LORAZEPAM
     Indication: PROPHYLAXIS
     Dosage: DF
     Dates: start: 20150716, end: 20150812
  35. ATORVASTATIN CALCIUM. [Concomitant]
     Active Substance: ATORVASTATIN CALCIUM
     Indication: HYPERLIPIDAEMIA
     Dosage: DF
     Dates: end: 20150816
  36. LOXOPROFEN SODIUM [Concomitant]
     Active Substance: LOXOPROFEN SODIUM
     Indication: CANCER PAIN
     Dosage: DF
  37. OXYCODONE HYDROCHLORIDE. [Concomitant]
     Active Substance: OXYCODONE HYDROCHLORIDE
     Indication: CANCER PAIN
     Dosage: DF
     Dates: start: 20150714, end: 20150714
  38. KINEDAK [Concomitant]
     Active Substance: EPALRESTAT
     Indication: DIABETIC NEUROPATHY
     Dates: start: 20150809, end: 20150816
  39. CANDESARTAN [Concomitant]
     Active Substance: CANDESARTAN
     Indication: HYPERTENSION
     Dosage: DF
     Dates: end: 20150804
  40. CIBENZOLINE SUCCINATE [Concomitant]
     Active Substance: CIFENLINE SUCCINATE
     Indication: ARRHYTHMIA
     Dates: end: 20150901
  41. CALONAL [Concomitant]
     Active Substance: ACETAMINOPHEN
     Indication: CANCER PAIN
     Dosage: DF
     Dates: start: 20150709, end: 20150817
  42. OXYCODONE HYDROCHLORIDE. [Concomitant]
     Active Substance: OXYCODONE HYDROCHLORIDE
     Dosage: DF
     Dates: start: 20150713, end: 20150713

REACTIONS (5)
  - Insomnia [Unknown]
  - Arrhythmia [Not Recovered/Not Resolved]
  - Constipation [Not Recovered/Not Resolved]
  - Neurogenic bladder [Not Recovered/Not Resolved]
  - Diabetic neuropathy [Not Recovered/Not Resolved]

NARRATIVE: CASE EVENT DATE: 201507
